FAERS Safety Report 15696193 (Version 1)
Quarter: 2018Q4

REPORT INFORMATION
  Report Type: Report from Study
  Country: US (occurrence: US)
  Receive Date: 20181206
  Receipt Date: 20181206
  Transmission Date: 20190205
  Serious: Yes (Death, Hospitalization)
  Sender: FDA-Public Use
  Company Number: US-ACTELION-A-US2016-147737

PATIENT
  Age: 59 Year
  Sex: Female
  Weight: 59.86 kg

DRUGS (4)
  1. SILDENAFIL CITRATE. [Concomitant]
     Active Substance: SILDENAFIL CITRATE
  2. VELETRI [Suspect]
     Active Substance: EPOPROSTENOL
     Indication: PULMONARY ARTERIAL HYPERTENSION
     Dosage: 5 NG/KG, PER MIN
     Route: 042
     Dates: start: 20161125
  3. LETAIRIS [Suspect]
     Active Substance: AMBRISENTAN
     Indication: PRODUCT USED FOR UNKNOWN INDICATION
     Route: 065
  4. VELETRI [Suspect]
     Active Substance: EPOPROSTENOL
     Dosage: 18 NG/KG, PER MIN
     Route: 042

REACTIONS (26)
  - Application site pruritus [Unknown]
  - Hypotension [Unknown]
  - Skin laceration [Unknown]
  - Haematoma [Unknown]
  - Application site erythema [Unknown]
  - Nausea [Unknown]
  - Suture insertion [Unknown]
  - Weight decreased [Unknown]
  - Fluid retention [Unknown]
  - Headache [Unknown]
  - Application site rash [Unknown]
  - Post-traumatic headache [Unknown]
  - Syncope [Unknown]
  - Loss of personal independence in daily activities [Unknown]
  - Arthropathy [Unknown]
  - Asthenia [Unknown]
  - Peripheral swelling [Unknown]
  - Dry skin [Unknown]
  - Sinusitis [Unknown]
  - Fall [Unknown]
  - Death [Fatal]
  - Pain in jaw [Unknown]
  - Dizziness [Unknown]
  - Fatigue [Unknown]
  - Loss of consciousness [Unknown]
  - Head injury [Unknown]

NARRATIVE: CASE EVENT DATE: 20171127
